FAERS Safety Report 6741294-7 (Version None)
Quarter: 2010Q2

REPORT INFORMATION
  Report Type: 
  Country: None (occurrence: None)
  Receive Date: 20100526
  Receipt Date: 20100517
  Transmission Date: 20101027
  Serious: Yes (Hospitalization)
  Sender: FDA-Public Use
  Company Number: FR-ASTRAZENECA-2008CG01327

PATIENT
  Age: 18748 Day
  Sex: Female

DRUGS (11)
  1. DIPRIVAN [Suspect]
     Indication: ANAESTHESIA
     Route: 042
     Dates: start: 20080526, end: 20080526
  2. DIPRIVAN [Suspect]
     Route: 042
     Dates: start: 20080526, end: 20080526
  3. HYPNOVEL [Suspect]
     Indication: ANAESTHESIA
     Route: 042
     Dates: start: 20080526, end: 20080526
  4. SUFENTA PRESERVATIVE FREE [Suspect]
     Indication: ANAESTHESIA
     Route: 042
     Dates: start: 20080526, end: 20080526
  5. SUFENTA PRESERVATIVE FREE [Suspect]
     Route: 042
     Dates: start: 20080526, end: 20080526
  6. SUFENTA PRESERVATIVE FREE [Suspect]
     Route: 042
     Dates: start: 20080526, end: 20080526
  7. NIMBEX [Suspect]
     Indication: ANAESTHESIA
     Route: 042
     Dates: start: 20080526, end: 20080526
  8. NIMBEX [Suspect]
     Route: 042
     Dates: start: 20080526, end: 20080526
  9. EPHEDRINE AGUETTANT [Suspect]
     Indication: ANAESTHESIA
     Route: 042
     Dates: start: 20080526, end: 20080526
  10. EPHEDRINE AGUETTANT [Suspect]
     Route: 042
     Dates: start: 20080526, end: 20080526
  11. EPHEDRINE AGUETTANT [Suspect]
     Route: 042
     Dates: start: 20080526, end: 20080526

REACTIONS (2)
  - ANAPHYLACTIC SHOCK [None]
  - HYPOTENSION [None]
